FAERS Safety Report 17567011 (Version 1)
Quarter: 2020Q1

REPORT INFORMATION
  Report Type: Spontaneous
  Country: US (occurrence: US)
  Receive Date: 20200320
  Receipt Date: 20200320
  Transmission Date: 20200409
  Serious: No
  Sender: FDA-Public Use
  Company Number: US-BIOGEN-2016BI00271968

PATIENT
  Age: 49 Year
  Sex: Female

DRUGS (4)
  1. AVONEX [Suspect]
     Active Substance: INTERFERON BETA-1A
     Route: 050
     Dates: start: 2016
  2. AVONEX [Suspect]
     Active Substance: INTERFERON BETA-1A
     Indication: MULTIPLE SCLEROSIS
     Route: 050
     Dates: start: 20160712, end: 20180801
  3. AVONEX [Suspect]
     Active Substance: INTERFERON BETA-1A
  4. AVONEX [Suspect]
     Active Substance: INTERFERON BETA-1A

REACTIONS (10)
  - Hypotension [Not Recovered/Not Resolved]
  - Headache [Not Recovered/Not Resolved]
  - Pain [Recovered/Resolved with Sequelae]
  - Hemianaesthesia [Unknown]
  - Feeling cold [Recovered/Resolved with Sequelae]
  - Chills [Not Recovered/Not Resolved]
  - Influenza like illness [Unknown]
  - Gastrooesophageal reflux disease [Not Recovered/Not Resolved]
  - Stress [Not Recovered/Not Resolved]
  - Feeling hot [Recovered/Resolved with Sequelae]

NARRATIVE: CASE EVENT DATE: 2016
